FAERS Safety Report 22105301 (Version 1)
Quarter: 2023Q1

REPORT INFORMATION
  Report Type: Report from Study
  Country: US (occurrence: US)
  Receive Date: 20230317
  Receipt Date: 20230317
  Transmission Date: 20230418
  Serious: Yes (Death, Other)
  Sender: FDA-Public Use
  Company Number: US-ACADIA PHARMACEUTICALS INC.-ACA-2023-PIM-000712

PATIENT
  Age: 79 Year
  Sex: Male

DRUGS (12)
  1. NUPLAZID [Suspect]
     Active Substance: PIMAVANSERIN TARTRATE
     Indication: Parkinson^s disease
     Dosage: 34 MILLIGRAM, QD
     Route: 048
     Dates: start: 20220509, end: 20230217
  2. NUPLAZID [Suspect]
     Active Substance: PIMAVANSERIN TARTRATE
     Indication: Hallucination
  3. XANAX [Concomitant]
     Active Substance: ALPRAZOLAM
  4. CARBIDOPA [Concomitant]
     Active Substance: CARBIDOPA
  5. LEVODOPA [Concomitant]
     Active Substance: LEVODOPA
  6. HALDOL [Concomitant]
     Active Substance: HALOPERIDOL
  7. LANTUS [Concomitant]
     Active Substance: INSULIN GLARGINE
  8. LISINOPRIL [Concomitant]
     Active Substance: LISINOPRIL
  9. PRAMIPEXOLE [Concomitant]
     Active Substance: PRAMIPEXOLE
  10. QUETIAPINE [Concomitant]
     Active Substance: QUETIAPINE
  11. RASAGILINE [Concomitant]
     Active Substance: RASAGILINE
  12. ZOFRAN [Concomitant]
     Active Substance: ONDANSETRON HYDROCHLORIDE

REACTIONS (1)
  - Death [Recovered/Resolved]

NARRATIVE: CASE EVENT DATE: 20230217
